FAERS Safety Report 5230558-4 (Version None)
Quarter: 2007Q1

REPORT INFORMATION
  Report Type: 
  Country: None (occurrence: None)
  Receive Date: 20070206
  Receipt Date: 20070129
  Transmission Date: 20070707
  Serious: Yes (Hospitalization)
  Sender: FDA-Public Use
  Company Number: NL-GLAXOSMITHKLINE-B0457023A

PATIENT
  Age: 61 Year
  Sex: Male

DRUGS (5)
  1. FLIXONASE [Suspect]
     Indication: RHINITIS ALLERGIC
     Dosage: 100MCG PER DAY
     Route: 045
     Dates: start: 20061229, end: 20070119
  2. ENALAPRIL MALEATE [Suspect]
     Dosage: 5MG PER DAY
     Route: 048
     Dates: start: 20060830
  3. ASCAL CARDIO [Concomitant]
     Dosage: 100MG PER DAY
     Route: 048
     Dates: start: 20030101
  4. METFORMIN HCL [Concomitant]
     Dosage: 1000MG PER DAY
     Route: 048
     Dates: start: 20010101
  5. LIPITOR [Concomitant]
     Dosage: 20MG PER DAY
     Route: 048

REACTIONS (3)
  - ANGIOEDEMA [None]
  - HYPERSENSITIVITY [None]
  - LOSS OF CONSCIOUSNESS [None]
